FAERS Safety Report 19574351 (Version 1)
Quarter: 2021Q3

REPORT INFORMATION
  Report Type: Spontaneous
  Country: DE (occurrence: DE)
  Receive Date: 20210719
  Receipt Date: 20210719
  Transmission Date: 20211014
  Serious: Yes (Hospitalization, Other)
  Sender: FDA-Public Use
  Company Number: DE-AUROBINDO-AUR-APL-2021-030187

PATIENT
  Sex: Female
  Weight: 93 kg

DRUGS (8)
  1. SYMBICORT [Concomitant]
     Active Substance: BUDESONIDE\FORMOTEROL FUMARATE DIHYDRATE
     Indication: PRODUCT USED FOR UNKNOWN INDICATION
     Dosage: 320/9?G, DAILY
     Route: 065
  2. LETROZOLE. [Suspect]
     Active Substance: LETROZOLE
     Indication: BREAST CANCER
     Dosage: 2.5 MILLIGRAM, DAILY
     Route: 065
     Dates: start: 2020
  3. ALLOPURINOL. [Concomitant]
     Active Substance: ALLOPURINOL
     Indication: PRODUCT USED FOR UNKNOWN INDICATION
     Dosage: 100 MILLIGRAM, DAILY
     Route: 065
  4. APIXABAN [Concomitant]
     Active Substance: APIXABAN
     Indication: PRODUCT USED FOR UNKNOWN INDICATION
     Dosage: 5 MILLIGRAM, DAILY
     Route: 065
  5. KISQALI [Suspect]
     Active Substance: RIBOCICLIB
     Indication: BREAST CANCER
     Dosage: 2.5 MILLIGRAM, ONCE A DAY
     Route: 048
     Dates: start: 20200806
  6. XGEVA [Suspect]
     Active Substance: DENOSUMAB
     Indication: METASTASES TO BONE
     Dosage: 120 MILLIGRAM QMO
     Route: 058
     Dates: start: 20200731
  7. RAMIPRIL. [Concomitant]
     Active Substance: RAMIPRIL
     Indication: PRODUCT USED FOR UNKNOWN INDICATION
     Dosage: 5/25 MG (DAILY)
     Route: 065
  8. DEKRISTOL [Concomitant]
     Active Substance: CHOLECALCIFEROL
     Indication: PRODUCT USED FOR UNKNOWN INDICATION
     Dosage: 20000 INTERNATIONAL UNIT, DAILY
     Route: 065

REACTIONS (9)
  - Osteonecrosis of jaw [Not Recovered/Not Resolved]
  - Acute kidney injury [Unknown]
  - Cardiac failure [Unknown]
  - Renal failure [Not Recovered/Not Resolved]
  - Fatigue [Unknown]
  - Hyperhidrosis [Unknown]
  - Sleep disorder [Unknown]
  - Atrial fibrillation [Unknown]
  - Abscess jaw [Recovered/Resolved]

NARRATIVE: CASE EVENT DATE: 20200813
